FAERS Safety Report 6193993-6 (Version None)
Quarter: 2009Q2

REPORT INFORMATION
  Report Type: 
  Country: None (occurrence: None)
  Receive Date: 20090518
  Receipt Date: 20090511
  Transmission Date: 20091009
  Serious: Yes (Other)
  Sender: FDA-Public Use
  Company Number: PHHY2009CA17629

PATIENT

DRUGS (9)
  1. DIOVAN T30230++HY [Suspect]
     Dosage: 80 MG
     Route: 048
     Dates: start: 20081215, end: 20090106
  2. ACE INHIBITOR NOS [Concomitant]
  3. ASAPHEN [Concomitant]
     Dosage: 80 MG/DAY
  4. CELEXA [Concomitant]
     Dosage: 20 DAILY
  5. SPIRIVA [Concomitant]
     Dosage: 18 UG DAILY
  6. ADVAIR HFA [Concomitant]
     Dosage: 250, BID
  7. PREVACID [Concomitant]
     Dosage: 30
  8. NOVO-GESIC [Concomitant]
     Dosage: 500, 2 TAB
  9. CLONAZEPAM [Concomitant]
     Dosage: 0.5, BID

REACTIONS (3)
  - ANGIOPLASTY [None]
  - MYOCARDIAL INFARCTION [None]
  - STENT PLACEMENT [None]
